FAERS Safety Report 21188451 (Version 1)
Quarter: 2022Q3

REPORT INFORMATION
  Report Type: Spontaneous
  Country: US (occurrence: US)
  Receive Date: 20220809
  Receipt Date: 20220809
  Transmission Date: 20221027
  Serious: Yes (Other)
  Sender: FDA-Public Use
  Company Number: US-IGSA-BIG0015171

PATIENT
  Age: 7 Year
  Sex: Male
  Weight: 23.7 kg

DRUGS (2)
  1. GAMUNEX-C [Suspect]
     Active Substance: HUMAN IMMUNOGLOBULIN G
     Indication: Immunodeficiency common variable
     Dosage: 10 GRAM, Q.M.T.
     Route: 042
     Dates: start: 20200324
  2. GAMUNEX-C [Suspect]
     Active Substance: HUMAN IMMUNOGLOBULIN G
     Indication: Acute lymphocytic leukaemia

REACTIONS (3)
  - Urticaria [Recovered/Resolved]
  - Respiratory distress [Recovered/Resolved]
  - Infusion related reaction [Recovered/Resolved]
